FAERS Safety Report 13636824 (Version 1)
Quarter: 2017Q2

REPORT INFORMATION
  Report Type: Spontaneous
  Country: US (occurrence: US)
  Receive Date: 20170531
  Receipt Date: 20170531
  Transmission Date: 20170830
  Serious: No
  Sender: FDA-Public Use
  Company Number: US-ASTELLAS-1854013

PATIENT
  Age: 74 Year
  Sex: Female
  Weight: 94.43 kg

DRUGS (2)
  1. TARCEVA [Suspect]
     Active Substance: ERLOTINIB HYDROCHLORIDE
     Route: 048
     Dates: start: 20160209
  2. TARCEVA [Suspect]
     Active Substance: ERLOTINIB HYDROCHLORIDE
     Indication: LUNG NEOPLASM MALIGNANT
     Dosage: EVERY OTHER DAY
     Route: 048
     Dates: start: 201506

REACTIONS (4)
  - Drug ineffective [Unknown]
  - Fatigue [Unknown]
  - Diarrhoea [Recovered/Resolved]
  - Alopecia [Unknown]

NARRATIVE: CASE EVENT DATE: 201507
